FAERS Safety Report 7879465-9 (Version None)
Quarter: 2011Q4

REPORT INFORMATION
  Report Type: 
  Country: None (occurrence: None)
  Receive Date: 20111101
  Receipt Date: 20101104
  Transmission Date: 20120403
  Serious: No
  Sender: FDA-Public Use
  Company Number: US-ABBOTT-10P-163-0683231-00

PATIENT
  Sex: Male
  Weight: 70.37 kg

DRUGS (3)
  1. BIAXIN [Suspect]
     Indication: PROPHYLAXIS
     Route: 048
     Dates: start: 20100927
  2. SILODOSIN [Interacting]
     Indication: BENIGN PROSTATIC HYPERPLASIA
     Route: 048
     Dates: start: 20101017, end: 20101017
  3. BIAXIN [Interacting]
     Indication: SURGERY

REACTIONS (2)
  - ABDOMINAL PAIN UPPER [None]
  - DRUG INTERACTION [None]
